FAERS Safety Report 6835368-X (Version None)
Quarter: 2010Q3

REPORT INFORMATION
  Report Type: 
  Country: None (occurrence: None)
  Receive Date: 20100713
  Receipt Date: 20100628
  Transmission Date: 20110219
  Serious: Yes (Hospitalization)
  Sender: FDA-Public Use
  Company Number: DK-NOVOPROD-300975

PATIENT
  Age: 40 Year
  Sex: Female
  Weight: 84 kg

DRUGS (7)
  1. NOVOMIX 30 FLEXPEN [Suspect]
     Indication: GESTATIONAL DIABETES
     Dosage: 16 IU, QD
     Route: 058
     Dates: start: 20090921, end: 20090922
  2. METFORMIN HCL [Concomitant]
  3. FOLIC ACID [Concomitant]
     Route: 048
  4. CALCIUM [Concomitant]
     Route: 048
  5. MAGNESIUM [Concomitant]
     Route: 048
  6. VITAMIN A [Concomitant]
     Route: 048
  7. VITAMIIN C [Suspect]
     Route: 048

REACTIONS (5)
  - DIZZINESS [None]
  - MALAISE [None]
  - NAUSEA [None]
  - PREGNANCY [None]
  - PRURITUS [None]
